FAERS Safety Report 8133815-7 (Version None)
Quarter: 2012Q1

REPORT INFORMATION
  Report Type: 
  Country: None (occurrence: None)
  Receive Date: 20120213
  Receipt Date: 20120213
  Transmission Date: 20120608
  Serious: No
  Sender: FDA-Public Use
  Company Number: None

PATIENT
  Age: 60 Year
  Sex: Female
  Weight: 63.502 kg

DRUGS (1)
  1. GENTEAL [Suspect]
     Indication: DRY EYE
     Dosage: AS NEEDED
     Route: 061
     Dates: start: 20120101, end: 20120211

REACTIONS (1)
  - LIQUID PRODUCT PHYSICAL ISSUE [None]
